FAERS Safety Report 5542403-8 (Version None)
Quarter: 2007Q4

REPORT INFORMATION
  Report Type: 
  Country: None (occurrence: None)
  Receive Date: 20071129
  Receipt Date: 20070621
  Transmission Date: 20080405
  Serious: Yes (Hospitalization)
  Sender: FDA-Public Use
  Company Number: US200706001551

PATIENT
  Age: 13 Year
  Sex: Female

DRUGS (2)
  1. ZYPREXA [Suspect]
     Indication: SCHIZOPHRENIA
     Dosage: 20 MG, DAILY (1/D), ORAL
     Route: 048
  2. CLONIDINE [Concomitant]

REACTIONS (2)
  - METABOLIC DISORDER [None]
  - TYPE 2 DIABETES MELLITUS [None]
